FAERS Safety Report 13966285 (Version 1)
Quarter: 2017Q3

REPORT INFORMATION
  Report Type: Spontaneous
  Country: US (occurrence: US)
  Receive Date: 20170913
  Receipt Date: 20170913
  Transmission Date: 20171128
  Serious: Yes (Other)
  Sender: FDA-Public Use
  Company Number: US-LUNDBECK-DKLU2036957

PATIENT
  Age: 68 Year
  Sex: Male

DRUGS (2)
  1. NORTHERA [Suspect]
     Active Substance: DROXIDOPA
     Indication: PARKINSON^S DISEASE
     Route: 048
     Dates: start: 20170608
  2. NORTHERA [Suspect]
     Active Substance: DROXIDOPA
     Indication: ORTHOSTATIC HYPOTENSION

REACTIONS (6)
  - Loss of consciousness [Unknown]
  - Depression [Unknown]
  - Dizziness [Unknown]
  - Crying [Unknown]
  - Seizure [Unknown]
  - Blood pressure inadequately controlled [Unknown]

NARRATIVE: CASE EVENT DATE: 201708
